FAERS Safety Report 24729764 (Version 2)
Quarter: 2024Q4

REPORT INFORMATION
  Report Type: Spontaneous
  Country: NL (occurrence: NL)
  Receive Date: 20241213
  Receipt Date: 20241230
  Transmission Date: 20250115
  Serious: Yes (Hospitalization, Other)
  Sender: AUROBINDO
  Company Number: NL-SUN PHARMACEUTICAL INDUSTRIES LTD-2024RR-481505

PATIENT
  Age: 67 Year
  Sex: Female
  Weight: 81.5 kg

DRUGS (6)
  1. OXALIPLATIN [Suspect]
     Active Substance: OXALIPLATIN
     Indication: Adenocarcinoma gastric
     Dosage: 250 MILLIGRAM/SQ. METER
     Route: 042
     Dates: start: 20240611, end: 20240723
  2. IMODIUM [Suspect]
     Active Substance: LOPERAMIDE HYDROCHLORIDE
     Indication: Sepsis
     Dosage: 2 MILLIGRAM, TWO TIMES A DAY
     Route: 048
     Dates: start: 20240611
  3. IMODIUM [Suspect]
     Active Substance: LOPERAMIDE HYDROCHLORIDE
     Indication: Diarrhoea
     Dosage: 4 MILLIGRAM, TWO TIMES A DAY
     Route: 048
     Dates: start: 20240813
  4. TISLELIZUMAB [Suspect]
     Active Substance: TISLELIZUMAB
     Indication: Adenocarcinoma gastric
     Dosage: UNK
     Route: 065
  5. CAPECITABINE [Suspect]
     Active Substance: CAPECITABINE
     Indication: Adenocarcinoma gastric
     Dosage: 100 MILLIGRAM/SQ. METER, TWO TIMES A DAY
     Route: 048
     Dates: start: 20240611
  6. ZANIDATAMAB [Suspect]
     Active Substance: ZANIDATAMAB
     Indication: Adenocarcinoma gastric
     Dosage: 2400 MILLIGRAM
     Route: 042
     Dates: start: 20240611

REACTIONS (1)
  - Sepsis [Recovered/Resolved]

NARRATIVE: CASE EVENT DATE: 20240813
